FAERS Safety Report 21755446 (Version 2)
Quarter: 2023Q1

REPORT INFORMATION
  Report Type: Report from Study
  Country: US (occurrence: US)
  Receive Date: 20221220
  Receipt Date: 20230113
  Transmission Date: 20230418
  Serious: Yes (Other)
  Sender: FDA-Public Use
  Company Number: US-JNJFOC-20221224044

PATIENT
  Age: 27 Year
  Sex: Female
  Weight: 67.192 kg

DRUGS (2)
  1. TREMFYA [Suspect]
     Active Substance: GUSELKUMAB
     Indication: Psoriatic arthropathy
     Route: 058
     Dates: start: 20220325
  2. TREMFYA [Suspect]
     Active Substance: GUSELKUMAB
     Indication: Rheumatoid arthritis

REACTIONS (5)
  - Psoriatic arthropathy [Not Recovered/Not Resolved]
  - Device leakage [Unknown]
  - Drug ineffective [Unknown]
  - Syringe issue [Unknown]
  - Underdose [Unknown]
